FAERS Safety Report 4962570-4 (Version None)
Quarter: 2006Q1

REPORT INFORMATION
  Report Type: 
  Country: None (occurrence: None)
  Receive Date: 20060201
  Receipt Date: 20051107
  Transmission Date: 20060701
  Serious: No
  Sender: FDA-Public Use
  Company Number: 2005PV004151

PATIENT
  Age: 54 Year
  Sex: Female
  Weight: 115.6672 kg

DRUGS (12)
  1. BYETTA [Suspect]
     Indication: DIABETES MELLITUS NON-INSULIN-DEPENDENT
     Dosage: 5 MCG;BID;SC
     Route: 058
     Dates: start: 20051104
  2. METFORMIN [Concomitant]
  3. AVANDIA [Concomitant]
  4. HUMALOG MIX 75/25 [Concomitant]
  5. OMNICEF [Concomitant]
  6. AMITRIPTYLINE HCL [Concomitant]
  7. ZOCOR [Concomitant]
  8. METOPROLOL SUCCINATE [Concomitant]
  9. TRICOR [Concomitant]
  10. NEXIUM [Concomitant]
  11. LIPITOR [Concomitant]
  12. COZAAR [Concomitant]

REACTIONS (3)
  - ABDOMINAL PAIN [None]
  - DIARRHOEA [None]
  - FAECES DISCOLOURED [None]
